FAERS Safety Report 22895436 (Version 4)
Quarter: 2023Q4

REPORT INFORMATION
  Report Type: Spontaneous
  Country: US (occurrence: US)
  Receive Date: 20230901
  Receipt Date: 20231106
  Transmission Date: 20240110
  Serious: No
  Sender: FDA-Public Use
  Company Number: US-PFIZER INC-202300287353

PATIENT
  Age: 5 Year
  Sex: Female

DRUGS (2)
  1. GENOTROPIN [Suspect]
     Active Substance: SOMATROPIN
     Indication: Prader-Willi syndrome
     Dosage: UNK
     Dates: start: 2018, end: 2021
  2. GENOTROPIN [Suspect]
     Active Substance: SOMATROPIN
     Dosage: 0.7 MG, 1X/DAY
     Route: 030
     Dates: start: 202307

REACTIONS (6)
  - Off label use [Unknown]
  - Drug dose omission by device [Unknown]
  - Product storage error [Unknown]
  - Device physical property issue [Unknown]
  - Device malfunction [Unknown]
  - Device information output issue [Unknown]

NARRATIVE: CASE EVENT DATE: 20230701
